FAERS Safety Report 4852800-1 (Version None)
Quarter: 2005Q4

REPORT INFORMATION
  Report Type: 
  Country: None (occurrence: None)
  Receive Date: 20051212
  Receipt Date: 20051212
  Transmission Date: 20060501
  Serious: Yes (Hospitalization)
  Sender: FDA-Public Use
  Company Number: None

PATIENT
  Age: 46 Year
  Sex: Male
  Weight: 90.6 kg

DRUGS (2)
  1. DIVALPROEX SODIUM [Suspect]
     Dosage: 750MG  Q12H  PO
     Route: 048
  2. RISPERIDONE [Suspect]
     Dosage: 2MG  BID  PO
     Route: 048

REACTIONS (2)
  - MULTIPLE DRUG OVERDOSE INTENTIONAL [None]
  - SUICIDAL IDEATION [None]
